FAERS Safety Report 16741464 (Version 2)
Quarter: 2019Q3

REPORT INFORMATION
  Report Type: Spontaneous
  Country: CH (occurrence: CH)
  Receive Date: 20190826
  Receipt Date: 20190828
  Transmission Date: 20191005
  Serious: Yes (Death, Life-Threatening, Hospitalization, Other)
  Sender: FDA-Public Use
  Company Number: CH-ASTRAZENECA-2019SF18929

PATIENT
  Age: 561 Month
  Sex: Male

DRUGS (15)
  1. VALTREX [Suspect]
     Active Substance: VALACYCLOVIR HYDROCHLORIDE
     Indication: ANTIVIRAL PROPHYLAXIS
     Route: 048
     Dates: start: 2018, end: 20190718
  2. ATRIANCE [Suspect]
     Active Substance: NELARABINE
     Indication: T-CELL LYMPHOMA
     Route: 042
     Dates: start: 20190527, end: 20190531
  3. ACIDUM FOLICUM [Concomitant]
     Active Substance: FOLIC ACID
     Route: 048
  4. VITAMIN D3 [Concomitant]
     Active Substance: CHOLECALCIFEROL
     Route: 048
  5. NEXIUM [Suspect]
     Active Substance: ESOMEPRAZOLE MAGNESIUM
     Route: 048
     Dates: start: 2018, end: 20190702
  6. ATRIANCE [Suspect]
     Active Substance: NELARABINE
     Indication: T-CELL LYMPHOMA
     Route: 042
     Dates: start: 20190617, end: 20190621
  7. JADENU [Suspect]
     Active Substance: DEFERASIROX
     Indication: IRON OVERLOAD
     Route: 048
     Dates: start: 2018, end: 20190717
  8. BACTRIM [Suspect]
     Active Substance: SULFAMETHOXAZOLE\TRIMETHOPRIM
     Indication: ANTIBIOTIC PROPHYLAXIS
     Dosage: 160MG/800MG 1-0-0-0 3X/WEEK
     Route: 048
     Dates: start: 2018, end: 20190719
  9. VORICONAZOL [Suspect]
     Active Substance: VORICONAZOLE
     Indication: CANDIDA INFECTION
     Dosage: 300 OR 200 MG/DAY
     Route: 048
     Dates: start: 20190330, end: 20190717
  10. DAFALGAN [Suspect]
     Active Substance: ACETAMINOPHEN
     Indication: ANALGESIC THERAPY
     Dosage: 500.0MG AS REQUIRED
     Route: 048
     Dates: start: 2018, end: 20190628
  11. PIPERACILINA/TAZOBACTAM SANDOZ [Suspect]
     Active Substance: PIPERACILLIN SODIUM\TAZOBACTAM SODIUM
     Indication: CHOLECYSTITIS
     Route: 042
     Dates: start: 20190628, end: 20190702
  12. PIPERACILINA/TAZOBACTAM SANDOZ [Suspect]
     Active Substance: PIPERACILLIN SODIUM\TAZOBACTAM SODIUM
     Indication: CHOLECYSTITIS
     Route: 042
     Dates: start: 20190716, end: 20190717
  13. SPIRICORT [Concomitant]
     Active Substance: PREDNISOLONE
     Route: 048
  14. LANTUS [Concomitant]
     Active Substance: INSULIN GLARGINE
     Dosage: ACCORDING TO SCHEME
     Route: 058
  15. NOVORAPID [Concomitant]
     Active Substance: INSULIN ASPART
     Dosage: ACCORDING TO SCHEME
     Route: 058

REACTIONS (18)
  - Alanine aminotransferase increased [Fatal]
  - Cholecystitis [Unknown]
  - C-reactive protein increased [Unknown]
  - Gamma-glutamyltransferase increased [Fatal]
  - Multiple organ dysfunction syndrome [Fatal]
  - Disease progression [Fatal]
  - General physical health deterioration [Unknown]
  - Blood lactate dehydrogenase increased [Fatal]
  - Blood alkaline phosphatase increased [Fatal]
  - Aspartate aminotransferase increased [Fatal]
  - Tachycardia [Unknown]
  - Drug-induced liver injury [Fatal]
  - Atypical pneumonia [Unknown]
  - Dyspnoea [Unknown]
  - Respiratory failure [Unknown]
  - Hepatic failure [Fatal]
  - Pyrexia [Unknown]
  - Fatigue [Unknown]

NARRATIVE: CASE EVENT DATE: 201906
